FAERS Safety Report 13071845 (Version 3)
Quarter: 2017Q1

REPORT INFORMATION
  Report Type: Spontaneous
  Country: NL (occurrence: NL)
  Receive Date: 20161229
  Receipt Date: 20170203
  Transmission Date: 20170428
  Serious: Yes (Death, Other)
  Sender: FDA-Public Use
  Company Number: NL-TOLMAR, INC.-2016NL014028

PATIENT
  Age: 91 Year
  Sex: Male

DRUGS (10)
  1. ALENDRONIC ACID [Concomitant]
     Active Substance: ALENDRONIC ACID
  2. FENTANYL. [Concomitant]
     Active Substance: FENTANYL
  3. VITAMIN D                          /00107901/ [Concomitant]
     Active Substance: ERGOCALCIFEROL
  4. LACTULOSE. [Concomitant]
     Active Substance: LACTULOSE
  5. PARACETAMOL [Concomitant]
     Active Substance: ACETAMINOPHEN
  6. HYALURONIC ACID [Concomitant]
     Active Substance: HYALURONIC ACID
     Dosage: 0.5 MG/ML
  7. NAPROXEN. [Concomitant]
     Active Substance: NAPROXEN
     Dosage: 500 MG, UNK
  8. ELIGARD [Suspect]
     Active Substance: LEUPROLIDE ACETATE
     Indication: PROSTATE CANCER
     Dosage: 45 MG, 6 MONTHS
     Route: 058
     Dates: start: 20160810, end: 20160810
  9. DUROGESIC [Concomitant]
     Active Substance: FENTANYL
  10. FENTANYL SANDOZ [Concomitant]
     Active Substance: FENTANYL

REACTIONS (1)
  - Condition aggravated [Fatal]

NARRATIVE: CASE EVENT DATE: 20161021
